FAERS Safety Report 7209478-1 (Version None)
Quarter: 2011Q1

REPORT INFORMATION
  Report Type: 
  Country: None (occurrence: None)
  Receive Date: 20110104
  Receipt Date: 20101227
  Transmission Date: 20110831
  Serious: Yes (Other)
  Sender: FDA-Public Use
  Company Number: US-AMGEN-USASP2010009698

PATIENT

DRUGS (1)
  1. ENBREL [Suspect]
     Indication: ANKYLOSING SPONDYLITIS
     Dosage: 50 MG, QWK
     Dates: start: 20100518, end: 20100501

REACTIONS (4)
  - PALPITATIONS [None]
  - HYPERSENSITIVITY [None]
  - DYSPNOEA [None]
  - PANIC ATTACK [None]
